FAERS Safety Report 8448865-0 (Version None)
Quarter: 2012Q2

REPORT INFORMATION
  Report Type: 
  Country: None (occurrence: None)
  Receive Date: 20120613
  Receipt Date: 20120531
  Transmission Date: 20120825
  Serious: Yes (Hospitalization)
  Sender: FDA-Public Use
  Company Number: 217672

PATIENT
  Age: 37 Year
  Sex: Female
  Weight: 83 kg

DRUGS (7)
  1. METRONIDAZOLE [Concomitant]
  2. INNOHEP [Suspect]
     Indication: DEEP VEIN THROMBOSIS
     Dosage: (0.3 ML), SUBCUTANEOUS
     Route: 058
     Dates: start: 20120515
  3. IBUPROFEN [Concomitant]
  4. SERTRALINE HYDROCHLORIDE [Concomitant]
  5. YASMIN [Concomitant]
  6. VENTOLIN [Concomitant]
  7. QVAR [Concomitant]

REACTIONS (5)
  - INFUSION RELATED REACTION [None]
  - TREMOR [None]
  - PARAESTHESIA [None]
  - INFUSION SITE ERYTHEMA [None]
  - HYPERTENSION [None]
